FAERS Safety Report 8265122-6 (Version None)
Quarter: 2012Q2

REPORT INFORMATION
  Report Type: 
  Country: None (occurrence: None)
  Receive Date: 20120406
  Receipt Date: 20120404
  Transmission Date: 20120825
  Serious: Yes (Hospitalization, Other)
  Sender: FDA-Public Use
  Company Number: US-PFIZER INC-2012037219

PATIENT
  Age: 51 Year
  Sex: Male

DRUGS (3)
  1. TRAZODONE [Concomitant]
     Dosage: UNK
  2. NEURONTIN [Concomitant]
     Dosage: UNK
  3. CHANTIX [Suspect]
     Indication: SMOKING CESSATION THERAPY
     Dosage: 0.5 MG, DAILY (STATER PACK)
     Route: 048
     Dates: start: 20120101, end: 20120105

REACTIONS (1)
  - SUICIDE ATTEMPT [None]
